FAERS Safety Report 5945668-3 (Version None)
Quarter: 2008Q4

REPORT INFORMATION
  Report Type: 
  Country: None (occurrence: None)
  Receive Date: 20081107
  Receipt Date: 20081029
  Transmission Date: 20090506
  Serious: Yes (Hospitalization)
  Sender: FDA-Public Use
  Company Number: JP-PFIZER INC-2008093736

PATIENT
  Age: 79 Year
  Sex: Male

DRUGS (8)
  1. QUINAPRIL HCL [Suspect]
     Route: 048
  2. AMLODIN [Suspect]
     Route: 048
  3. EUGLUCON [Suspect]
     Route: 048
  4. BASEN [Suspect]
     Route: 048
  5. ASPIRIN [Suspect]
     Route: 048
  6. DIGOXIN [Suspect]
     Route: 048
  7. OTHER ANALGESICS AND ANTIPYRETICS [Suspect]
     Route: 048
     Dates: start: 20080522
  8. OTHER ANALGESICS AND ANTIPYRETICS [Suspect]
     Dates: start: 20080523

REACTIONS (1)
  - TOXIC EPIDERMAL NECROLYSIS [None]
